FAERS Safety Report 6083441-9 (Version None)
Quarter: 2009Q1

REPORT INFORMATION
  Report Type: 
  Country: None (occurrence: None)
  Receive Date: 20090219
  Receipt Date: 20090212
  Transmission Date: 20090719
  Serious: Yes (Hospitalization)
  Sender: FDA-Public Use
  Company Number: US-KINGPHARMUSA00001-K200900135

PATIENT
  Age: 63 Year
  Sex: Male

DRUGS (12)
  1. ALTACE [Suspect]
     Indication: HYPERTENSION
     Dosage: 2.5 MG, QD
     Route: 048
     Dates: end: 20080629
  2. LASIX [Suspect]
     Dosage: 20 MG, QD
     Route: 048
     Dates: end: 20080629
  3. ALDACTONE [Concomitant]
     Dosage: UNK
     Route: 048
  4. DEPAKINE CHRONO                    /01294701/ [Concomitant]
     Indication: EPILEPSY
     Dosage: 1000 MG, UNK
     Route: 048
  5. EFFEXOR [Concomitant]
     Dosage: 225 MG, UNK
     Route: 048
  6. XATRAL                             /00975301/ [Concomitant]
     Dosage: 10 MG, UNK
     Route: 048
  7. SOLIAN [Concomitant]
     Dosage: 600 MG, UNK
     Route: 048
  8. TRANXENE [Concomitant]
     Dosage: 30 MG, UNK
     Route: 048
  9. CORDARONE [Concomitant]
  10. LEVOTHYROX [Concomitant]
     Dosage: 75 U/G, UNK
     Route: 048
  11. CACIT                              /00108001/ [Concomitant]
     Dosage: 1 U, UNK
     Route: 048
  12. MOVICOL                            /01053601/ [Concomitant]
     Dosage: 1 U, UNK
     Route: 048

REACTIONS (6)
  - FALL [None]
  - HYPONATRAEMIA [None]
  - MALAISE [None]
  - ORTHOSTATIC HYPOTENSION [None]
  - RENAL FAILURE ACUTE [None]
  - RHABDOMYOLYSIS [None]
